APPROVED DRUG PRODUCT: MINOCYCLINE HYDROCHLORIDE
Active Ingredient: MINOCYCLINE HYDROCHLORIDE
Strength: EQ 100MG BASE
Dosage Form/Route: TABLET;ORAL
Application: A065156 | Product #003 | TE Code: AB
Applicant: TORRENT PHARMACEUTICALS LTD
Approved: Jan 6, 2004 | RLD: No | RS: No | Type: RX